FAERS Safety Report 5212022-1 (Version None)
Quarter: 2007Q1

REPORT INFORMATION
  Report Type: 
  Country: None (occurrence: None)
  Receive Date: 20070118
  Receipt Date: 20070110
  Transmission Date: 20070707
  Serious: Yes (Hospitalization, Other)
  Sender: FDA-Public Use
  Company Number: US-AVENTIS-200619030US

PATIENT
  Sex: Female

DRUGS (3)
  1. LANTUS [Suspect]
  2. APIDRA [Suspect]
     Dosage: DOSE: UNK
  3. UNKNOWN DRUG [Concomitant]
     Dosage: DOSE: UNK

REACTIONS (5)
  - AMNESIA [None]
  - CORONARY ARTERY DISEASE [None]
  - FEELING ABNORMAL [None]
  - HEMIPARESIS [None]
  - VISUAL FIELD DEFECT [None]
